FAERS Safety Report 4860184-8 (Version None)
Quarter: 2005Q4

REPORT INFORMATION
  Report Type: 
  Country: None (occurrence: None)
  Receive Date: 20051219
  Receipt Date: 20020710
  Transmission Date: 20060501
  Serious: Yes (Hospitalization)
  Sender: FDA-Public Use
  Company Number: TH-ROCHE-316979

PATIENT
  Age: 55 Year
  Sex: Female
  Weight: 61 kg

DRUGS (3)
  1. PEG-INTERFERON ALFA 2A (RO 25-8310) [Suspect]
     Route: 058
     Dates: start: 20010919, end: 20020709
  2. PEG-INTERFERON ALFA 2A (RO 25-8310) [Suspect]
     Route: 058
     Dates: end: 20020814
  3. LAMIVUDINE [Suspect]
     Route: 048
     Dates: start: 20010919, end: 20020820

REACTIONS (4)
  - BACTERIAL INFECTION [None]
  - BRONCHITIS ACUTE [None]
  - DYSURIA [None]
  - SALMONELLA SEPSIS [None]
